FAERS Safety Report 4264363-2 (Version None)
Quarter: 2004Q1

REPORT INFORMATION
  Report Type: 
  Country: None (occurrence: None)
  Receive Date: 20040106
  Receipt Date: 20040106
  Transmission Date: 20041129
  Serious: Yes (Other)
  Sender: FDA-Public Use
  Company Number: None

PATIENT
  Age: 19 Year
  Sex: Female
  Weight: 97.5234 kg

DRUGS (1)
  1. DEPO-PROVERA [Suspect]
     Dosage: 1 EVERY INTRAMUSCULAR
     Route: 030

REACTIONS (2)
  - AMENORRHOEA [None]
  - MENORRHAGIA [None]
